FAERS Safety Report 9954653 (Version 2)
Quarter: 2014Q1

REPORT INFORMATION
  Report Type: Report from Study
  Country: US (occurrence: US)
  Receive Date: 20140304
  Receipt Date: 20140304
  Transmission Date: 20141002
  Serious: No
  Sender: FDA-Public Use
  Company Number: US-ABBVIE-13P-163-1065415-00

PATIENT
  Age: 47 Year
  Sex: Male

DRUGS (8)
  1. HUMIRA [Suspect]
     Indication: PSORIATIC ARTHROPATHY
     Dates: start: 20121220, end: 20130411
  2. EDARBI [Concomitant]
     Indication: BLOOD PRESSURE
  3. DILANTIN [Concomitant]
     Indication: EPILEPSY
  4. LEVOTHYROXINE [Concomitant]
     Indication: HYPOTHYROIDISM
  5. CYMBALTA [Concomitant]
     Indication: ARTHRALGIA
  6. VITAMIN D SUPPLEMENT [Concomitant]
     Indication: VITAMIN D DECREASED
  7. MOBIC [Concomitant]
     Indication: BACK PAIN
  8. STEROID NOSE INHALER [Concomitant]
     Indication: SINUS DISORDER
     Dosage: AT HS

REACTIONS (3)
  - Fatigue [Recovering/Resolving]
  - Nasopharyngitis [Recovered/Resolved]
  - Rhinorrhoea [Recovering/Resolving]
